FAERS Safety Report 4280202-8 (Version None)
Quarter: 2004Q1

REPORT INFORMATION
  Report Type: 
  Country: None (occurrence: None)
  Receive Date: 20040128
  Receipt Date: 20040122
  Transmission Date: 20041129
  Serious: Yes (Hospitalization)
  Sender: FDA-Public Use
  Company Number: NL-GLAXOSMITHKLINE-B0320703A

PATIENT
  Age: 47 Year
  Sex: Male

DRUGS (6)
  1. BUPROPRION HCL [Suspect]
     Indication: SMOKING CESSATION THERAPY
     Dosage: 150MG PER DAY
  2. TRAMADOL HCL [Concomitant]
     Dosage: 400MG PER DAY
  3. SALBUTAMOL / IPRATROPIUM [Concomitant]
     Dates: start: 20031217
  4. SALMETEROL XINAFOATE + FLUTICASONE PROPIONATE [Concomitant]
     Route: 055
     Dates: start: 20031217
  5. CODEINE [Concomitant]
     Dosage: 30MG PER DAY
     Route: 048
  6. MORPHINE SULFATE [Concomitant]
     Dosage: 20MG PER DAY
     Route: 048
     Dates: start: 20031222

REACTIONS (3)
  - CONVULSION [None]
  - MUSCLE TWITCHING [None]
  - SALIVARY HYPERSECRETION [None]
